FAERS Safety Report 6569821-3 (Version None)
Quarter: 2010Q1

REPORT INFORMATION
  Report Type: 
  Country: None (occurrence: None)
  Receive Date: 20100202
  Receipt Date: 20100202
  Transmission Date: 20100710
  Serious: Yes (Hospitalization)
  Sender: FDA-Public Use
  Company Number: None

PATIENT
  Sex: Female
  Weight: 82.5547 kg

DRUGS (2)
  1. PEG-INTRON [Suspect]
     Indication: HEPATITIS C
     Dosage: 150 MCG/0.5 ML WEEKLY SQ
     Route: 058
     Dates: start: 20091228, end: 20100128
  2. RIBAVIRIN [Suspect]
     Indication: HEPATITIS C
     Dosage: 1200MG PER DAY BID PO
     Route: 048
     Dates: start: 20091228, end: 20100128

REACTIONS (1)
  - UPPER RESPIRATORY FUNGAL INFECTION [None]
